FAERS Safety Report 6728408-X (Version None)
Quarter: 2010Q2

REPORT INFORMATION
  Report Type: 
  Country: None (occurrence: None)
  Receive Date: 20100517
  Receipt Date: 20100505
  Transmission Date: 20101027
  Serious: Yes (Other)
  Sender: FDA-Public Use
  Company Number: FR-PFIZER INC-2010058983

PATIENT
  Sex: Female

DRUGS (2)
  1. ATARAX [Suspect]
     Dosage: UNK
     Route: 064
     Dates: start: 20100301, end: 20100410
  2. SERESTA [Suspect]
     Indication: ANXIETY DISORDER
     Dosage: 150 MG DAILY
     Route: 064
     Dates: end: 20100301

REACTIONS (5)
  - AGITATION [None]
  - CRYING [None]
  - DRUG EXPOSURE DURING PREGNANCY [None]
  - INCREASED APPETITE [None]
  - WITHDRAWAL SYNDROME [None]
